FAERS Safety Report 24825604 (Version 6)
Quarter: 2025Q4

REPORT INFORMATION
  Report Type: Spontaneous
  Country: IN (occurrence: IN)
  Receive Date: 20250109
  Receipt Date: 20251013
  Transmission Date: 20260118
  Serious: Yes (Death, Hospitalization, Other)
  Sender: PFIZER
  Company Number: IN-PFIZER INC-PV202400154254

PATIENT
  Age: 70 Year
  Sex: Female

DRUGS (7)
  1. LORLATINIB [Suspect]
     Active Substance: LORLATINIB
     Indication: Non-small cell lung cancer
     Dosage: 100 MG, 1X/DAY
     Route: 048
     Dates: start: 20241029
  2. ASPIRIN\ATORVASTATIN [Concomitant]
     Active Substance: ASPIRIN\ATORVASTATIN
     Dosage: UNK, 1X/DAY (AT BEDTIME (H/S)
  3. NEFROSAVE [Concomitant]
     Dosage: 1 DF, 2X/DAY
  4. CALCITRIOL [Concomitant]
     Active Substance: CALCITRIOL
     Dosage: UNK, (SACHET ONCE IN 15 DAYS WITH MILK)
  5. IVABRADINE HYDROCHLORIDE [Concomitant]
     Active Substance: IVABRADINE HYDROCHLORIDE
     Dosage: 5 MG, 2X/DAY (BD)
  6. TORSEMIDE [Concomitant]
     Active Substance: TORSEMIDE
     Dosage: 10 MG, 1X/DAY (OD 8AM, CAN INCREASED TO BD 8AM - 4 PM)
  7. CYCLOPHOSPHAMIDE [Concomitant]
     Active Substance: CYCLOPHOSPHAMIDE
     Indication: Premedication
     Dosage: 200 MG

REACTIONS (2)
  - Death [Fatal]
  - Aspiration pleural cavity [Unknown]

NARRATIVE: CASE EVENT DATE: 20240101
